FAERS Safety Report 5842572-6 (Version None)
Quarter: 2008Q3

REPORT INFORMATION
  Report Type: 
  Country: None (occurrence: None)
  Receive Date: 20080812
  Receipt Date: 20080731
  Transmission Date: 20090109
  Serious: Yes (Other)
  Sender: FDA-Public Use
  Company Number: US-PFIZER INC-2008064804

PATIENT
  Sex: Female
  Weight: 63.5 kg

DRUGS (1)
  1. CHANTIX [Suspect]
     Indication: SMOKING CESSATION THERAPY
     Dosage: FREQ:DAILY

REACTIONS (2)
  - PALPITATIONS [None]
  - RECTAL HAEMORRHAGE [None]
